APPROVED DRUG PRODUCT: PREDNISOLONE
Active Ingredient: PREDNISOLONE
Strength: 5MG/5ML
Dosage Form/Route: SYRUP;ORAL
Application: A040570 | Product #001
Applicant: PHARMACEUTICAL ASSOCIATES INC
Approved: Aug 25, 2005 | RLD: No | RS: No | Type: DISCN